FAERS Safety Report 13154485 (Version 1)
Quarter: 2017Q1

REPORT INFORMATION
  Report Type: Spontaneous
  Country: US (occurrence: US)
  Receive Date: 20170123
  Receipt Date: 20170123
  Transmission Date: 20170428
  Serious: Yes (Disabling)
  Sender: FDA-Public Use
  Company Number: None

PATIENT
  Age: 31 Year
  Sex: Female

DRUGS (5)
  1. PRENATAL VITAMINS [Concomitant]
     Active Substance: VITAMINS
  2. PRO-BIOTICS [Concomitant]
  3. CIPROFLOXACIN. [Suspect]
     Active Substance: CIPROFLOXACIN
     Indication: URINARY TRACT INFECTION
     Route: 048
     Dates: start: 20161222, end: 20161227
  4. OMEGA 3 SUPPLEMENTS [Concomitant]
  5. IUD NOS [Concomitant]
     Active Substance: COPPER OR LEVONORGESTREL

REACTIONS (10)
  - Arthralgia [None]
  - Myalgia [None]
  - Hyperacusis [None]
  - Dizziness [None]
  - Neuralgia [None]
  - Alopecia [None]
  - Memory impairment [None]
  - Arthritis [None]
  - Visual impairment [None]
  - Depressed level of consciousness [None]

NARRATIVE: CASE EVENT DATE: 20161224
